FAERS Safety Report 6640786-9 (Version None)
Quarter: 2010Q1

REPORT INFORMATION
  Report Type: 
  Country: None (occurrence: None)
  Receive Date: 20100318
  Receipt Date: 20100309
  Transmission Date: 20100710
  Serious: Yes (Hospitalization, Other)
  Sender: FDA-Public Use
  Company Number: DE-PFIZER INC-2006053782

PATIENT
  Age: 62 Year
  Sex: Female
  Weight: 50 kg

DRUGS (2)
  1. SUNITINIB MALATE [Suspect]
     Indication: METASTATIC RENAL CELL CARCINOMA
     Dosage: 50 MG, 1X/DAY
     Route: 048
     Dates: start: 20051216, end: 20060407
  2. METRONIDAZOLE [Concomitant]
     Route: 048
     Dates: start: 20060401, end: 20060501

REACTIONS (3)
  - DEHYDRATION [None]
  - DIARRHOEA [None]
  - PSEUDOMEMBRANOUS COLITIS [None]
